FAERS Safety Report 6557358-7 (Version None)
Quarter: 2010Q1

REPORT INFORMATION
  Report Type: 
  Country: None (occurrence: None)
  Receive Date: 20100127
  Receipt Date: 20100127
  Transmission Date: 20100710
  Serious: Yes (Hospitalization)
  Sender: FDA-Public Use
  Company Number: None

PATIENT
  Age: 50 Year
  Sex: Female
  Weight: 77.1115 kg

DRUGS (1)
  1. ADVAIR DISKUS 500/50 [Suspect]
     Indication: ASTHMA
     Dosage: 1 2X DAY INHAL
     Route: 055
     Dates: start: 20091209, end: 20100109

REACTIONS (12)
  - AMENORRHOEA [None]
  - BREAST ENLARGEMENT [None]
  - DYSPNOEA [None]
  - EYE DISORDER [None]
  - HAEMOPTYSIS [None]
  - HYPERTENSION [None]
  - PAIN IN JAW [None]
  - PALPITATIONS [None]
  - PHARYNGEAL OEDEMA [None]
  - SWOLLEN TONGUE [None]
  - URTICARIA [None]
  - WEIGHT INCREASED [None]
